FAERS Safety Report 17515118 (Version 1)
Quarter: 2020Q1

REPORT INFORMATION
  Report Type: Spontaneous
  Country: GB (occurrence: GB)
  Receive Date: 20200309
  Receipt Date: 20200309
  Transmission Date: 20200409
  Serious: Yes (Other)
  Sender: FDA-Public Use
  Company Number: GB-TEVA-2020-GB-1195402

PATIENT
  Age: 71 Year
  Sex: Female
  Weight: 99 kg

DRUGS (8)
  1. AMOXICILLIN. [Concomitant]
     Active Substance: AMOXICILLIN
     Dosage: 3 DOSAGE FORMS
     Dates: start: 20191127, end: 20191202
  2. SALBUTAMOL [Concomitant]
     Active Substance: ALBUTEROL
     Dosage: FOUR TIMES A DAY; 2 DOSAGE FORMS
     Route: 055
     Dates: start: 20191007
  3. FELODIPINE. [Concomitant]
     Active Substance: FELODIPINE
     Dosage: 1 DOSAGE FORMS DAILY; EACH MORNING
     Dates: start: 20190429
  4. QUININE [Concomitant]
     Active Substance: QUININE
     Dosage: AT NIGHT; 1 DOSAGE FORM
     Dates: start: 20190429
  5. INDAPAMIDE. [Suspect]
     Active Substance: INDAPAMIDE
     Dosage: 2.5 MILLIGRAM DAILY; EACH MORNING
     Dates: start: 20200214
  6. PREDNISOLONE. [Concomitant]
     Active Substance: PREDNISOLONE
     Dosage: IN THE MORNING FOR 5 DAYS (6 DOSAGE FORMS)
     Dates: start: 20191127, end: 20191202
  7. ANORO [Concomitant]
     Active Substance: UMECLIDINIUM BROMIDE\VILANTEROL TRIFENATATE
     Dosage: INHALE; 1 DOSAGE FORM
     Dates: start: 20190429
  8. LANSOPRAZOLE. [Concomitant]
     Active Substance: LANSOPRAZOLE
     Dosage: 1 DOSAGE FORM
     Dates: start: 20190429

REACTIONS (1)
  - Swelling face [Recovered/Resolved]

NARRATIVE: CASE EVENT DATE: 20200218
